FAERS Safety Report 7116989-6 (Version None)
Quarter: 2010Q4

REPORT INFORMATION
  Report Type: 
  Country: None (occurrence: None)
  Receive Date: 20101122
  Receipt Date: 20101111
  Transmission Date: 20110411
  Serious: Yes (Hospitalization)
  Sender: FDA-Public Use
  Company Number: DE-ASTRAZENECA-2010SE53759

PATIENT
  Age: 35 Year
  Sex: Female

DRUGS (1)
  1. PROPOFOL [Suspect]
     Indication: ANAESTHESIA
     Dosage: TOTAL DOSE OF 540 MG OF PROPOFOL
     Route: 042

REACTIONS (2)
  - ACUTE HEPATIC FAILURE [None]
  - ENCEPHALOPATHY [None]
